FAERS Safety Report 20200472 (Version 2)
Quarter: 2021Q4

REPORT INFORMATION
  Report Type: Spontaneous
  Country: US (occurrence: US)
  Receive Date: 20211217
  Receipt Date: 20211231
  Transmission Date: 20220303
  Serious: Yes (Other)
  Sender: FDA-Public Use
  Company Number: US-TEVA-2021-US-1988029

PATIENT
  Age: 58 Year
  Sex: Female

DRUGS (8)
  1. CARBOPLATIN [Suspect]
     Active Substance: CARBOPLATIN
     Indication: Papillary serous endometrial carcinoma
     Dosage: AUC 6
     Route: 065
     Dates: end: 201409
  2. OLAPARIB [Suspect]
     Active Substance: OLAPARIB
     Indication: Papillary serous endometrial carcinoma
     Dosage: FOR APPORXIMATELY 6 MONTHS
     Route: 048
     Dates: end: 201606
  3. PACLITAXEL [Concomitant]
     Active Substance: PACLITAXEL
     Indication: Papillary serous endometrial carcinoma
     Dosage: 175MG/M2 EVERY 21 DAYS
     Route: 065
     Dates: end: 201409
  4. PACLITAXEL [Concomitant]
     Active Substance: PACLITAXEL
     Indication: Papillary serous endometrial carcinoma
     Dosage: 80MG/M2, DAYS 1,8 AND 15
     Route: 065
  5. DOXORUBICIN [Concomitant]
     Active Substance: DOXORUBICIN
     Indication: Papillary serous endometrial carcinoma
     Dosage: 40MG/M2, DAY 1, 6 CYCLES
     Route: 065
     Dates: end: 201508
  6. BEVACIZUMAB [Concomitant]
     Active Substance: BEVACIZUMAB
     Indication: Papillary serous endometrial carcinoma
     Dosage: 10MG/KG, DAYS 1 AND 15
     Route: 065
  7. BEVACIZUMAB [Concomitant]
     Active Substance: BEVACIZUMAB
     Indication: Papillary serous endometrial carcinoma
     Dosage: 15MG/M2; EVERY 21 DAYS; 2 CYCLES
     Route: 065
  8. GEMCITABINE [Concomitant]
     Active Substance: GEMCITABINE
     Indication: Papillary serous endometrial carcinoma
     Dosage: 800MG/M2 EVERY 21 DAYS; 2 CYCLES
     Route: 065

REACTIONS (1)
  - Drug resistance [Unknown]
